FAERS Safety Report 5749920-6 (Version None)
Quarter: 2008Q2

REPORT INFORMATION
  Report Type: 
  Country: None (occurrence: None)
  Receive Date: 20080527
  Receipt Date: 20080519
  Transmission Date: 20081010
  Serious: Yes (Hospitalization)
  Sender: FDA-Public Use
  Company Number: US-ELI_LILLY_AND_COMPANY-US200805003753

PATIENT
  Sex: Male
  Weight: 126.53 kg

DRUGS (10)
  1. BYETTA [Suspect]
     Indication: TYPE 2 DIABETES MELLITUS
     Dosage: 5 UG, 2/D
     Route: 058
     Dates: start: 20071101, end: 20071201
  2. BYETTA [Suspect]
     Dosage: 10 UG, 2/D
     Route: 058
     Dates: start: 20080101
  3. AMARYL [Concomitant]
     Indication: TYPE 2 DIABETES MELLITUS
     Dosage: 2 MG, EACH MORNING
  4. AMARYL [Concomitant]
     Dosage: 1 MG, EACH EVENING
  5. DEMADEX [Concomitant]
     Dosage: 20 MG, EACH MORNING
  6. MAGNESIUM SULFATE [Concomitant]
     Dosage: UNK, UNKNOWN
  7. LIPITOR [Concomitant]
     Dosage: 10 MG, EACH EVENING
  8. METOLAZONE [Concomitant]
     Dosage: 2.5 MG, QOD
     Dates: start: 20080401
  9. ASPIRIN [Concomitant]
     Dosage: 81 MG, DAILY (1/D)
  10. FISH OIL [Concomitant]
     Dosage: UNK, UNKNOWN

REACTIONS (6)
  - ATRIAL FIBRILLATION [None]
  - BLOOD GLUCOSE INCREASED [None]
  - DYSPNOEA [None]
  - FLUID OVERLOAD [None]
  - URINARY RETENTION [None]
  - WEIGHT INCREASED [None]
